FAERS Safety Report 16023733 (Version 1)
Quarter: 2019Q1

REPORT INFORMATION
  Report Type: Spontaneous
  Country: JP (occurrence: JP)
  Receive Date: 20190301
  Receipt Date: 20190301
  Transmission Date: 20190418
  Serious: Yes (Hospitalization)
  Sender: FDA-Public Use
  Company Number: JP-BAYER-2019-041234

PATIENT
  Age: 30 Year
  Sex: Female

DRUGS (2)
  1. GADOVIST [Suspect]
     Active Substance: GADOBUTROL
     Indication: NUCLEAR MAGNETIC RESONANCE IMAGING
  2. GADOVIST [Suspect]
     Active Substance: GADOBUTROL
     Indication: OVARIAN NEOPLASM
     Dosage: UNK, ONCE
     Route: 042
     Dates: start: 20190209, end: 20190209

REACTIONS (2)
  - Dysphonia [Recovered/Resolved]
  - Eczema [Recovered/Resolved]

NARRATIVE: CASE EVENT DATE: 20190209
